FAERS Safety Report 5753760-1 (Version None)
Quarter: 2008Q2

REPORT INFORMATION
  Report Type: 
  Country: None (occurrence: None)
  Receive Date: 20080527
  Receipt Date: 20080508
  Transmission Date: 20081010
  Serious: Yes (Other)
  Sender: FDA-Public Use
  Company Number: 8032799

PATIENT
  Age: 29 Year
  Sex: Female

DRUGS (4)
  1. KEPPRA [Suspect]
     Indication: EPILEPSY
     Dosage: 750 MG 2/D PO
     Route: 048
     Dates: start: 20080206
  2. VALIUM [Concomitant]
  3. METHADONE HCL [Concomitant]
  4. ZIMOVANE [Concomitant]

REACTIONS (1)
  - ECCHYMOSIS [None]
